FAERS Safety Report 17129901 (Version 9)
Quarter: 2022Q3

REPORT INFORMATION
  Report Type: Spontaneous
  Country: US (occurrence: US)
  Receive Date: 20191209
  Receipt Date: 20220911
  Transmission Date: 20221026
  Serious: Yes (Hospitalization)
  Sender: FDA-Public Use
  Company Number: US-SA-2019SA174786

PATIENT
  Age: 58 Year
  Sex: Female

DRUGS (4)
  1. CEREZYME [Suspect]
     Active Substance: IMIGLUCERASE
     Indication: Gaucher^s disease
     Dosage: 1600 UNITS, Q3W
     Route: 042
     Dates: start: 20190417
  2. CEREZYME [Suspect]
     Active Substance: IMIGLUCERASE
     Dosage: 1600 UNITS, Q3W
     Route: 042
  3. CEREZYME [Suspect]
     Active Substance: IMIGLUCERASE
     Dosage: 1600 UNITS, Q3W
     Route: 042
     Dates: start: 20210417, end: 20210909
  4. CEREZYME [Suspect]
     Active Substance: IMIGLUCERASE
     Dosage: 1600 UNITS, Q3W
     Route: 042
     Dates: start: 2021

REACTIONS (3)
  - Pelvic operation [Unknown]
  - Product dose omission issue [Unknown]
  - Product use issue [Unknown]

NARRATIVE: CASE EVENT DATE: 20190417
